FAERS Safety Report 4272216-9 (Version None)
Quarter: 2004Q1

REPORT INFORMATION
  Report Type: 
  Country: None (occurrence: None)
  Receive Date: 20040115
  Receipt Date: 20031030
  Transmission Date: 20041129
  Serious: Yes (Hospitalization, Other)
  Sender: FDA-Public Use
  Company Number: FR-BRISTOL-MYERS SQUIBB COMPANY-12421822

PATIENT
  Age: 37 Year
  Sex: Male

DRUGS (4)
  1. SUSTIVA [Suspect]
     Indication: HIV INFECTION
     Route: 048
     Dates: start: 20031020, end: 20030101
  2. BACTRIM [Suspect]
     Indication: PROPHYLAXIS
     Route: 048
     Dates: start: 20031016, end: 20030101
  3. VIDEX [Concomitant]
     Dates: start: 20031026
  4. EPIVIR [Concomitant]
     Dates: start: 20031026

REACTIONS (8)
  - CHILLS [None]
  - DERMATITIS EXFOLIATIVE [None]
  - HEADACHE [None]
  - INSOMNIA [None]
  - PRURITUS [None]
  - PYREXIA [None]
  - RASH [None]
  - TREMOR [None]
